FAERS Safety Report 24449190 (Version 1)
Quarter: 2024Q4

REPORT INFORMATION
  Report Type: Spontaneous
  Country: GB (occurrence: GB)
  Receive Date: 20241017
  Receipt Date: 20241017
  Transmission Date: 20250114
  Serious: Yes (Other)
  Sender: ROCHE
  Company Number: GB-002147023-NVSC2024GB196696

PATIENT
  Age: 35 Year
  Sex: Female

DRUGS (1)
  1. XOLAIR [Suspect]
     Active Substance: OMALIZUMAB
     Indication: Chronic spontaneous urticaria
     Dosage: UNK (ROUTE: INJECTION)
     Route: 065

REACTIONS (3)
  - Urticaria [Recovering/Resolving]
  - Angioedema [Unknown]
  - Therapeutic product effect incomplete [Unknown]
